FAERS Safety Report 18641385 (Version 1)
Quarter: 2020Q4

REPORT INFORMATION
  Report Type: Spontaneous
  Country: US (occurrence: US)
  Receive Date: 20201221
  Receipt Date: 20201221
  Transmission Date: 20210114
  Serious: No
  Sender: FDA-Public Use
  Company Number: US-CELLTRION INC.-2020US028745

PATIENT

DRUGS (6)
  1. DIPHENHYDRAMINE. [Concomitant]
     Active Substance: DIPHENHYDRAMINE
     Indication: PREMEDICATION
     Dosage: 50 MG
  2. TRUXIMA [Suspect]
     Active Substance: RITUXIMAB-ABBS
     Indication: NON-HODGKIN^S LYMPHOMA
     Dosage: 670 MG Q7D X 8
     Route: 065
  3. DEXAMETHASONE. [Concomitant]
     Active Substance: DEXAMETHASONE
     Indication: PREMEDICATION
     Dosage: 10 MG
  4. TRUXIMA [Suspect]
     Active Substance: RITUXIMAB-ABBS
     Indication: GOITRE
  5. ACETAMINOPHEN. [Concomitant]
     Active Substance: ACETAMINOPHEN
     Indication: PREMEDICATION
     Dosage: 650 MG
  6. FAMOTIDINE. [Concomitant]
     Active Substance: FAMOTIDINE
     Indication: PREMEDICATION
     Dosage: 20 MG

REACTIONS (2)
  - Off label use [Unknown]
  - Product prescribing issue [Unknown]
